FAERS Safety Report 5735428-0 (Version None)
Quarter: 2008Q2

REPORT INFORMATION
  Report Type: 
  Country: None (occurrence: None)
  Receive Date: 20080512
  Receipt Date: 20080428
  Transmission Date: 20081010
  Serious: Yes (Death, Hospitalization)
  Sender: FDA-Public Use
  Company Number: DK-ROCHE-555094

PATIENT
  Sex: Female
  Weight: 57 kg

DRUGS (21)
  1. PEGASYS [Suspect]
     Dosage: FORM REPORTED AS SOLUTION FOR INJECTION.
     Route: 058
     Dates: start: 20070925, end: 20071010
  2. COPEGUS [Concomitant]
     Dosage: FORM REPORTED AS FILM COATED TABLET.
     Route: 048
     Dates: start: 20070925, end: 20071010
  3. FUROSEMIDE [Concomitant]
     Indication: ASCITES
     Dosage: TWO IN THE MORNING, ONE AT NOON.
     Route: 048
  4. SPIRIX [Concomitant]
     Indication: ASCITES
     Dosage: TWO DOSE FORM IN THE MORNING.
     Route: 048
  5. METADON [Concomitant]
     Dosage: DOSAGE REPORTED AS 120 ML DIVIDED IN DOSES. DRUG REPORTED AS METHADONE/METADON ^DAK^.
     Route: 048
     Dates: start: 19770101
  6. METADON [Concomitant]
     Route: 048
     Dates: start: 20071127
  7. METADON [Concomitant]
     Route: 048
     Dates: start: 20071201
  8. APOVIT [Concomitant]
     Indication: ALCOHOLISM
     Dosage: FORM REPORTED AS FILM COATED TABLET.
     Route: 048
  9. APOVIT [Concomitant]
     Dosage: FORM REPORTED AS FILM COATED TABLET.
     Route: 048
  10. VITAMIN B1 [Concomitant]
     Indication: ALCOHOLISM
     Dosage: IN THE MORNING.
     Route: 048
  11. LACTULOSE [Concomitant]
     Route: 048
  12. ALOPAM [Concomitant]
     Dosage: MAX. 5 MG BID.
     Route: 048
     Dates: start: 20071127
  13. IMOZOP [Concomitant]
     Dosage: FORM REPORTED AS FILM COATED TABLET.
     Route: 048
     Dates: start: 20071127
  14. DOLOL [Concomitant]
     Route: 048
     Dates: start: 20071127
  15. CIPROFLOXACIN HCL [Concomitant]
     Dosage: FORM REPORTED AS FILM COATED TABLET.
     Route: 048
     Dates: start: 20071130
  16. METRONIDAZOLE [Concomitant]
     Dosage: FORM REPORTED AS FILM COATED TABLET. DRUG REPORTED AS METRONIDAZOLE ^ACTAVIS^.
     Route: 048
     Dates: start: 20071130, end: 20071201
  17. PRIMPERAN TAB [Concomitant]
     Dosage: 20 MG MAX 3 X.
     Dates: start: 20071130
  18. OXYNORM [Concomitant]
     Dosage: FORM REPORTED AS HARD CAPSULE. DOSAGE REPORTED AS MAX QID.
     Route: 048
     Dates: start: 20071201
  19. UNIKALK [Concomitant]
     Indication: OSTEOPOROSIS
     Dosage: DRUG REPORTED AS UNIKALK FORTE. TAKEN IN THE MORNING AND IN THE EVENING.
     Route: 065
  20. MULTI-VITAMIN [Concomitant]
     Indication: MALNUTRITION
     Dosage: REPORTED AS MULTIIVITAMIN TOTAL. TAKEN IN THE MORNING.
  21. FORTIMEL [Concomitant]
     Dosage: REPORTED AS PROTEIN SUPPLEMENT.

REACTIONS (3)
  - ASCITES [None]
  - HEPATIC FAILURE [None]
  - JAUNDICE [None]
